FAERS Safety Report 13266622 (Version 3)
Quarter: 2017Q3

REPORT INFORMATION
  Report Type: Report from Study
  Country: US (occurrence: US)
  Receive Date: 20170223
  Receipt Date: 20170817
  Transmission Date: 20171127
  Serious: Yes (Other)
  Sender: FDA-Public Use
  Company Number: US-AMGEN-USASL2017026504

PATIENT
  Age: 86 Year
  Sex: Female

DRUGS (3)
  1. REPATHA [Suspect]
     Active Substance: EVOLOCUMAB
     Indication: HYPERCHOLESTEROLAEMIA
  2. PREDNISONE. [Suspect]
     Active Substance: PREDNISONE
     Indication: MALAISE
     Dosage: UNK
     Route: 065
     Dates: start: 20170807
  3. REPATHA [Suspect]
     Active Substance: EVOLOCUMAB
     Indication: BLOOD CHOLESTEROL INCREASED
     Dosage: 140 MG, Q2WK
     Route: 065

REACTIONS (6)
  - Malaise [Unknown]
  - Drug dose omission [Unknown]
  - Hypersensitivity [Unknown]
  - Postoperative wound infection [Not Recovered/Not Resolved]
  - Pain [Unknown]
  - Insomnia [Unknown]

NARRATIVE: CASE EVENT DATE: 201612
